FAERS Safety Report 21902131 (Version 1)
Quarter: 2023Q1

REPORT INFORMATION
  Report Type: Spontaneous
  Country: ES (occurrence: ES)
  Receive Date: 20230124
  Receipt Date: 20230124
  Transmission Date: 20230418
  Serious: Yes (Hospitalization, Other)
  Sender: FDA-Public Use
  Company Number: ES-AEMPS-1313477

PATIENT
  Age: 84 Year
  Sex: Male
  Weight: 71 kg

DRUGS (14)
  1. OLANZAPINE [Interacting]
     Active Substance: OLANZAPINE
     Indication: Agitation
     Dosage: 30 MILLIGRAM
     Route: 048
     Dates: start: 20220622, end: 20220704
  2. AMILORIDE HYDROCHLORIDE\HYDROCHLOROTHIAZIDE [Suspect]
     Active Substance: AMILORIDE HYDROCHLORIDE\HYDROCHLOROTHIAZIDE
     Indication: Hypertension
     Dosage: 1 DOSAGE FORM
     Route: 048
     Dates: start: 20220620, end: 20220701
  3. FUROSEMIDE [Suspect]
     Active Substance: FUROSEMIDE
     Indication: Hypertension
     Dosage: 40 MILLIGRAM
     Route: 048
     Dates: start: 20220620
  4. FLUCONAZOLE [Interacting]
     Active Substance: FLUCONAZOLE
     Indication: Pneumonia
     Dosage: 200 MILLIGRAM
     Route: 040
     Dates: start: 20220702, end: 20220704
  5. Vancomycin 1,000 mg injectable perfusion 1 vial [Concomitant]
     Indication: Pneumonia
     Dosage: 1500 MILLIGRAM, DAILY
     Route: 040
     Dates: start: 20220702, end: 20220706
  6. BOI-K ASPARTIC EFFERVESCENT TABLETS, 20 tablets [Concomitant]
     Indication: Hypokalaemia
     Dosage: 2 DOSAGE FORM, DAILY
     Route: 048
     Dates: start: 20220625, end: 20220704
  7. Pantoprazole 40 mg 14 tablets [Concomitant]
     Indication: Prophylaxis
     Dosage: 40 MILLIGRAM
     Route: 048
     Dates: start: 20220620, end: 20220718
  8. Piperacillin/Tazobactam 2,000 mg/250 mg injection 1 vial [Concomitant]
     Indication: Pneumonia
     Dosage: 4 GRAM, TID
     Route: 040
     Dates: start: 20220701, end: 20220709
  9. Atorvastatin 80 mg 28 tablets [Concomitant]
     Indication: Acute myocardial infarction
     Dosage: 80 MILLIGRAM
     Route: 048
     Dates: start: 20220620
  10. Ticagrelor 90 mg tablet [Concomitant]
     Indication: Acute myocardial infarction
     Dosage: 180 MILLIGRAM
     Route: 048
     Dates: start: 20220620
  11. HIBOR 2,500 IU ANTI-XA/0.2 ml SOLUTION FOR INJECTION IN PRE-FILLED SYR [Concomitant]
     Indication: Prophylaxis
     Dosage: 2500 IU INTERNATIONAL UNIT(S)
     Route: 058
     Dates: start: 20220620, end: 20220718
  12. MAGNESIOBOI 48.62 mg TABLETS, 50 tablets [Concomitant]
     Indication: Hypomagnesaemia
     Dosage: 4 DOSAGE FORM, DAILY
     Route: 048
     Dates: start: 20220625, end: 20220704
  13. ADIRO 100 MG GASTRORESISTANT TABLETS EFG, 500 tablets [Concomitant]
     Indication: Acute myocardial infarction
     Dosage: 100 MILLIGRAM
     Route: 048
     Dates: start: 20220620
  14. Melatonin 2 mg 30 tablets modified release [Concomitant]
     Indication: Insomnia
     Dosage: 4 MILLIGRAM
     Route: 048
     Dates: start: 20220629, end: 20220718

REACTIONS (2)
  - Hyponatraemia [Recovered/Resolved]
  - Anticholinergic syndrome [Recovered/Resolved]

NARRATIVE: CASE EVENT DATE: 20220704
